FAERS Safety Report 10425023 (Version 1)
Quarter: 2014Q3

REPORT INFORMATION
  Report Type: Spontaneous
  Country: CA (occurrence: CA)
  Receive Date: 20140902
  Receipt Date: 20140902
  Transmission Date: 20150326
  Serious: Yes (Other)
  Sender: FDA-Public Use
  Company Number: CA-PFIZER INC-2014239620

PATIENT
  Age: 8 Month
  Sex: Male

DRUGS (1)
  1. ADVIL PEDIATRIC DROPS [Suspect]
     Active Substance: IBUPROFEN
     Dosage: 1 DF, UNK

REACTIONS (3)
  - Reaction to drug excipients [Unknown]
  - Vomiting [Unknown]
  - Dehydration [Unknown]
